FAERS Safety Report 9230879 (Version 1)
Quarter: 2013Q2

REPORT INFORMATION
  Report Type: Report from Study
  Country: CR (occurrence: CR)
  Receive Date: 20130415
  Receipt Date: 20130415
  Transmission Date: 20140414
  Serious: Yes (Death)
  Sender: FDA-Public Use
  Company Number: CR-ABBOTT-13P-039-1075823-00

PATIENT
  Age: 20 Year
  Sex: Male

DRUGS (2)
  1. HUMIRA [Suspect]
     Indication: CROHN^S DISEASE
     Route: 058
  2. GROWTH HORMONES [Concomitant]
     Indication: VENOUS INSUFFICIENCY

REACTIONS (2)
  - Malnutrition [Fatal]
  - Nosocomial infection [Fatal]
